FAERS Safety Report 24816891 (Version 4)
Quarter: 2025Q2

REPORT INFORMATION
  Report Type: Spontaneous
  Country: US (occurrence: US)
  Receive Date: 20250107
  Receipt Date: 20250605
  Transmission Date: 20250717
  Serious: Yes (Other)
  Sender: AMGEN
  Company Number: US-AMGEN-USASP2024254908

PATIENT
  Age: 2 Year
  Sex: Female

DRUGS (2)
  1. RAVICTI [Suspect]
     Active Substance: GLYCEROL PHENYLBUTYRATE
     Indication: Urea cycle disorder
     Dosage: 1.2 MILLILITER, TID, (1.1GM/ML)
     Route: 048
     Dates: start: 202402
  2. RAVICTI [Suspect]
     Active Substance: GLYCEROL PHENYLBUTYRATE
     Indication: Ornithine transcarbamoylase deficiency

REACTIONS (3)
  - Deafness [Unknown]
  - Abdominal pain upper [Not Recovered/Not Resolved]
  - Fatigue [Unknown]

NARRATIVE: CASE EVENT DATE: 20240101
